FAERS Safety Report 10181928 (Version 2)
Quarter: 2014Q2

REPORT INFORMATION
  Report Type: Spontaneous
  Country: PL (occurrence: PL)
  Receive Date: 20140519
  Receipt Date: 20140519
  Transmission Date: 20141212
  Serious: Yes (Death, Other)
  Sender: FDA-Public Use
  Company Number: PL-BAXTER-2014BAX018385

PATIENT
  Age: 56 Year
  Sex: Female

DRUGS (11)
  1. ENDOXAN [Suspect]
     Indication: IMMUNOSUPPRESSANT DRUG THERAPY
     Dosage: 5 DAY PULSE WITH 2 COURSES
     Route: 042
  2. ENDOXAN [Suspect]
     Route: 042
  3. PREDNISOLONE [Suspect]
     Indication: IMMUNOSUPPRESSANT DRUG THERAPY
     Route: 065
  4. PREDNISOLONE [Suspect]
     Route: 048
  5. CEFUROXIME [Concomitant]
     Indication: ANTIBIOTIC THERAPY
     Route: 065
  6. VANCOMYCIN [Concomitant]
     Indication: ANTIBIOTIC THERAPY
     Route: 065
  7. CIPROFLOXACIN [Concomitant]
     Indication: ANTIBIOTIC THERAPY
     Route: 065
  8. CLINDAMYCIN [Concomitant]
     Indication: ANTIBIOTIC THERAPY
     Route: 065
  9. FLUCONAZOLE [Concomitant]
     Indication: ANTIFUNGAL TREATMENT
     Route: 065
  10. OMEPRAZOLE [Concomitant]
     Indication: GASTRIC PH DECREASED
     Route: 065
  11. INSULIN [Concomitant]
     Indication: PRODUCT USED FOR UNKNOWN INDICATION
     Route: 065

REACTIONS (2)
  - Drug ineffective [Recovered/Resolved]
  - Lower respiratory tract infection [Fatal]
